FAERS Safety Report 7201784-X (Version None)
Quarter: 2010Q4

REPORT INFORMATION
  Report Type: 
  Country: None (occurrence: None)
  Receive Date: 20101229
  Receipt Date: 20101221
  Transmission Date: 20110411
  Serious: Yes (Death)
  Sender: FDA-Public Use
  Company Number: JP-GENZYME-FLUD-1000560

PATIENT
  Sex: Male
  Weight: 68 kg

DRUGS (30)
  1. FLUDARA [Suspect]
     Indication: PREMEDICATION
     Dosage: UNK
     Route: 065
     Dates: start: 20100325, end: 20100328
  2. THYMOGLOBULIN [Suspect]
     Indication: PREMEDICATION
     Dosage: 2.5 MG, ONCE
     Route: 042
     Dates: start: 20100325, end: 20100327
  3. THYMOGLOBULIN [Suspect]
     Dosage: 147.5 MG, ONCE
     Route: 042
     Dates: start: 20100325, end: 20100325
  4. BUSULFAN [Concomitant]
     Indication: PREMEDICATION
     Dosage: UNK
     Route: 065
     Dates: start: 20100325, end: 20100328
  5. METHYLPREDNISOLONE SODIUM SUCCINATE [Concomitant]
     Indication: PREMEDICATION
     Dosage: UNK
     Route: 065
     Dates: start: 20100325, end: 20100328
  6. GRANISETRON HYDROCHLORIDE [Concomitant]
     Indication: DRUG TOXICITY PROPHYLAXIS
     Dosage: UNK
     Route: 065
     Dates: start: 20100325, end: 20100328
  7. ITRACONAZOLE [Concomitant]
     Indication: INFECTION PROPHYLAXIS
     Dosage: UNK
     Route: 065
     Dates: start: 20100325, end: 20100328
  8. LEVOFLOXACIN [Concomitant]
     Indication: INFECTION PROPHYLAXIS
     Dosage: UNK
     Route: 065
     Dates: start: 20100325, end: 20100402
  9. ACYCLOVIR [Concomitant]
     Indication: INFECTION PROPHYLAXIS
     Dosage: UNK
     Route: 065
     Dates: start: 20100325, end: 20100402
  10. URSODEOXYCHOLIC ACID [Concomitant]
     Indication: PROPHYLAXIS
     Dosage: UNK
     Route: 065
     Dates: start: 20100325, end: 20100402
  11. VALPROATE SODIUM [Concomitant]
     Indication: PROPHYLAXIS
     Dosage: UNK
     Route: 065
     Dates: start: 20100325, end: 20100329
  12. SULFAMETHOXAZOLE W [Concomitant]
     Indication: INFECTION PROPHYLAXIS
     Dosage: UNK
     Route: 065
     Dates: start: 20100325, end: 20100404
  13. HYDROCORTISONE SODIUM SUCCINATE [Concomitant]
     Indication: PRODUCT USED FOR UNKNOWN INDICATION
     Dosage: UNK
     Route: 065
     Dates: start: 20100330, end: 20100330
  14. GLYCYRRHIZIN GLYCINE CYSTEINE COMBINED DRUG [Concomitant]
     Indication: PRODUCT USED FOR UNKNOWN INDICATION
     Dosage: UNK
     Route: 065
     Dates: start: 20100330, end: 20100330
  15. CYCLOSPORINE [Concomitant]
     Indication: PROPHYLAXIS AGAINST GRAFT VERSUS HOST DISEASE
     Dosage: UNK
     Route: 065
     Dates: start: 20100329, end: 20100426
  16. FILGRASTIM [Concomitant]
     Indication: PROPHYLAXIS
     Dosage: UNK
     Route: 065
     Dates: start: 20100331, end: 20100428
  17. POLYETHYLENE GLYCOL [Concomitant]
     Indication: INFECTION PROPHYLAXIS
     Dosage: UNK
     Route: 065
     Dates: start: 20100331, end: 20100421
  18. MORPHINE HYDROCHLORIDE [Concomitant]
     Indication: PRODUCT USED FOR UNKNOWN INDICATION
     Dosage: UNK
     Route: 065
     Dates: start: 20100503, end: 20100510
  19. FUROSEMIDE [Concomitant]
     Indication: MYELOFIBROSIS
     Dosage: UNK
     Route: 065
     Dates: start: 20100410, end: 20100514
  20. VANCOMYCIN HYDROCHLORIDE [Concomitant]
     Indication: PRODUCT USED FOR UNKNOWN INDICATION
     Dosage: UNK
     Route: 065
     Dates: start: 20100414, end: 20100514
  21. NOREPINEPHRINE BITARTRATE [Concomitant]
     Indication: MYELOFIBROSIS
     Dosage: UNK
     Route: 065
     Dates: start: 20100515, end: 20100516
  22. BETAMETHASONE [Concomitant]
     Indication: CHRONIC GRAFT VERSUS HOST DISEASE
     Dosage: UNK
     Route: 065
     Dates: end: 20100516
  23. INSULIN [Concomitant]
     Indication: DIABETES MELLITUS
     Dosage: UNK
     Route: 065
     Dates: end: 20100516
  24. RED BLOOD CELLS, CONCENTRATED [Concomitant]
     Indication: MYELOFIBROSIS
     Dosage: UNK
     Route: 065
     Dates: start: 20100129, end: 20100514
  25. PLATELETS, CONCENTRATED [Concomitant]
     Indication: MYELOFIBROSIS
     Dosage: UNK
     Route: 065
     Dates: start: 20100129, end: 20100514
  26. METHYLPREDNISOLONE SODIUM SUCCINATE [Concomitant]
     Indication: PRODUCT USED FOR UNKNOWN INDICATION
     Dosage: UNK
     Route: 065
     Dates: start: 20100426, end: 20100430
  27. METHYLPREDNISOLONE SODIUM SUCCINATE [Concomitant]
     Dosage: UNK
     Route: 065
     Dates: start: 20100503, end: 20100510
  28. METHYLPREDNISOLONE SODIUM SUCCINATE [Concomitant]
     Dosage: UNK
     Route: 065
     Dates: start: 20100426, end: 20100510
  29. HYDROCORTISONE SODIUM SUCCINATE [Concomitant]
     Dosage: UNK
     Route: 065
     Dates: start: 20100409, end: 20100516
  30. FILGRASTIM [Concomitant]
     Dosage: UNK
     Route: 065
     Dates: start: 20100503, end: 20100516

REACTIONS (2)
  - PYREXIA [None]
  - URINARY TRACT INFECTION BACTERIAL [None]
